FAERS Safety Report 10368786 (Version 1)
Quarter: 2014Q3

REPORT INFORMATION
  Report Type: Report from Study
  Country: GB (occurrence: GB)
  Receive Date: 20140807
  Receipt Date: 20140807
  Transmission Date: 20150326
  Serious: Yes (Other)
  Sender: FDA-Public Use
  Company Number: GB-MYLAN-2014M1000751

PATIENT

DRUGS (2)
  1. AZATHIOPRINE. [Suspect]
     Active Substance: AZATHIOPRINE
     Indication: IMMUNOSUPPRESSION
     Route: 065
     Dates: start: 201004, end: 201008
  2. CYCLOPHOSPHAMIDE. [Suspect]
     Active Substance: CYCLOPHOSPHAMIDE
     Indication: IMMUNOSUPPRESSION
     Route: 065
     Dates: start: 200905, end: 200912

REACTIONS (7)
  - Herpes zoster [Unknown]
  - Gastroenteritis [Unknown]
  - Cytomegalovirus viraemia [Unknown]
  - Hypogammaglobulinaemia [Recovering/Resolving]
  - Pneumocystis jirovecii pneumonia [Unknown]
  - Eye infection [Unknown]
  - Respiratory tract infection [Unknown]

NARRATIVE: CASE EVENT DATE: 2010
